FAERS Safety Report 9705849 (Version 2)
Quarter: 2013Q4

REPORT INFORMATION
  Report Type: Spontaneous
  Country: US (occurrence: US)
  Receive Date: 20131122
  Receipt Date: 20131122
  Transmission Date: 20140711
  Serious: No
  Sender: FDA-Public Use
  Company Number: US-GILEAD-2008-0017905

PATIENT
  Age: 28 Year
  Sex: Female

DRUGS (11)
  1. LETAIRIS [Suspect]
     Indication: PULMONARY ARTERIAL HYPERTENSION
     Route: 048
     Dates: start: 200707, end: 20080723
  2. PREDNISONE [Concomitant]
  3. IVIG INFUSIONS [Concomitant]
  4. REGLAN [Concomitant]
  5. EVOXAC [Concomitant]
  6. NASONEX [Concomitant]
  7. BICITRA [Concomitant]
  8. POTASSIUM [Concomitant]
  9. ALTACE [Concomitant]
  10. NEXIUM [Concomitant]
  11. OS-CAL [Concomitant]

REACTIONS (2)
  - Liver function test abnormal [Recovered/Resolved]
  - White blood cell count decreased [Unknown]
